FAERS Safety Report 7242127-5 (Version None)
Quarter: 2011Q1

REPORT INFORMATION
  Report Type: 
  Country: None (occurrence: None)
  Receive Date: 20110118
  Receipt Date: 20110112
  Transmission Date: 20110831
  Serious: Yes (Other)
  Sender: FDA-Public Use
  Company Number: US-1184647

PATIENT
  Age: 80 Year
  Sex: Male

DRUGS (12)
  1. XANAX [Concomitant]
  2. ALPHAGAN [Concomitant]
  3. TYLENOL W/ CODEINE [Concomitant]
  4. HUMULIN R [Concomitant]
  5. TRAVATAN [Suspect]
     Dosage: (1 GTT QD OU OPHTHALMIC)
     Route: 047
  6. SYSTANE [Concomitant]
  7. DOXAZOSIN MESYLATE [Concomitant]
  8. DRISTAN [Concomitant]
  9. HUMULIN N [Concomitant]
  10. PREDNISONE [Concomitant]
  11. COSCOPT [Concomitant]
  12. HUMALOG [Concomitant]

REACTIONS (3)
  - VISUAL ACUITY REDUCED [None]
  - DRY EYE [None]
  - EYE IRRITATION [None]
